FAERS Safety Report 9551658 (Version 1)
Quarter: 2013Q3

REPORT INFORMATION
  Report Type: Spontaneous
  Country: US (occurrence: None)
  Receive Date: 20130724
  Receipt Date: 20130724
  Transmission Date: 20140515
  Serious: Yes (Other)
  Sender: FDA-Public Use
  Company Number: PHEH2013US003824

PATIENT
  Age: 84 Year
  Sex: Female

DRUGS (2)
  1. GLEEVEC [Suspect]
     Route: 048
  2. HYDREA (HYDROXYCARBAMICE) [Concomitant]

REACTIONS (3)
  - Leukopenia [None]
  - Anaemia [None]
  - Thrombocytopenia [None]
